FAERS Safety Report 9218006 (Version 3)
Quarter: 2013Q3

REPORT INFORMATION
  Report Type: Spontaneous
  Country: US (occurrence: US)
  Receive Date: 20130408
  Receipt Date: 20130701
  Transmission Date: 20140515
  Serious: Yes (Other)
  Sender: FDA-Public Use
  Company Number: US-PFIZER INC-2013104554

PATIENT
  Sex: Female

DRUGS (4)
  1. CELEBREX [Suspect]
     Indication: ARTHRALGIA
     Dosage: 200 MG, 1X/DAY
     Route: 048
     Dates: start: 20130319
  2. MELOXICAM [Suspect]
     Dosage: UNK
  3. VOLTAREN [Suspect]
     Dosage: UNK
  4. IRON [Concomitant]
     Dosage: UNK

REACTIONS (5)
  - Obesity [Unknown]
  - Abdominal pain upper [Not Recovered/Not Resolved]
  - Abdominal discomfort [Not Recovered/Not Resolved]
  - Depressed mood [Unknown]
  - Affective disorder [Unknown]
